FAERS Safety Report 7390953-4 (Version None)
Quarter: 2011Q2

REPORT INFORMATION
  Report Type: 
  Country: None (occurrence: None)
  Receive Date: 20110404
  Receipt Date: 20110328
  Transmission Date: 20111010
  Serious: No
  Sender: FDA-Public Use
  Company Number: US-PFIZER INC-2011069228

PATIENT
  Sex: Female
  Weight: 81.633 kg

DRUGS (5)
  1. ATORVASTATIN [Concomitant]
     Dosage: UNK
  2. PREMARIN [Suspect]
     Dosage: 0.625MG ONCE A DAY
  3. PREMARIN [Suspect]
     Dosage: UNK
     Dates: start: 20110301
  4. PREMARIN [Suspect]
     Dosage: 0.45MG ONCE A DAY
  5. PREMARIN [Suspect]
     Indication: HORMONE REPLACEMENT THERAPY
     Dosage: 0.9 MG, DAILY
     Route: 048

REACTIONS (5)
  - HOT FLUSH [None]
  - VULVOVAGINAL DRYNESS [None]
  - IRRITABILITY [None]
  - DRUG INTOLERANCE [None]
  - NIGHT SWEATS [None]
